FAERS Safety Report 8905281 (Version 2)
Quarter: 2012Q4

REPORT INFORMATION
  Report Type: 
  Country: US (occurrence: US)
  Receive Date: 20121109
  Receipt Date: 20121123
  Transmission Date: 20130627
  Serious: Yes (Hospitalization)
  Sender: FDA-Public Use
  Company Number: US-MERCK-1211USA002295

PATIENT
  Age: 61 None
  Sex: Male

DRUGS (4)
  1. PEGINTRON [Suspect]
     Indication: HEPATITIS C
     Dosage: 80 Microgram, qw
     Route: 058
     Dates: start: 20120824
  2. TELAPREVIR [Suspect]
     Dosage: UNK
     Dates: start: 20120824, end: 20121118
  3. RIBAPAK [Suspect]
     Dosage: UNK
     Dates: start: 20120824, end: 20121012
  4. RIBAPAK [Suspect]
     Dosage: UNK
     Dates: start: 20121014

REACTIONS (5)
  - Red blood cell count decreased [Recovered/Resolved]
  - Blood pressure fluctuation [Recovered/Resolved]
  - Depression [Recovered/Resolved]
  - Weight increased [Unknown]
  - Dyspnoea [Unknown]
